FAERS Safety Report 10959990 (Version 3)
Quarter: 2015Q2

REPORT INFORMATION
  Report Type: Spontaneous
  Country: DE (occurrence: DE)
  Receive Date: 20150327
  Receipt Date: 20150522
  Transmission Date: 20150821
  Serious: Yes (Hospitalization)
  Sender: FDA-Public Use
  Company Number: DE-ROCHE-1556056

PATIENT
  Age: 52 Year
  Sex: Female

DRUGS (2)
  1. LUCENTIS [Suspect]
     Active Substance: RANIBIZUMAB
     Route: 050
     Dates: start: 20141016, end: 20141016
  2. LUCENTIS [Suspect]
     Active Substance: RANIBIZUMAB
     Indication: RENAL VEIN OCCLUSION
     Dosage: DOSE 10/MG/ML
     Route: 050
     Dates: start: 20140918

REACTIONS (6)
  - Pharyngitis [Unknown]
  - Conjunctival haemorrhage [Recovered/Resolved]
  - Hypoaesthesia [Recovered/Resolved with Sequelae]
  - Facial pain [Unknown]
  - Muscular weakness [Recovered/Resolved with Sequelae]
  - Oral herpes [Recovered/Resolved]

NARRATIVE: CASE EVENT DATE: 20141016
